FAERS Safety Report 10718202 (Version 1)
Quarter: 2015Q1

REPORT INFORMATION
  Report Type: Spontaneous
  Country: US (occurrence: US)
  Receive Date: 20150118
  Receipt Date: 20150118
  Transmission Date: 20150721
  Serious: Yes (Other)
  Sender: FDA-Public Use
  Company Number: US-RB-072228-15

PATIENT
  Age: 26 Year
  Sex: Female

DRUGS (4)
  1. MUCINEX FAST-MAX SEVERE CONGESTION AND COUGH [Suspect]
     Active Substance: DEXTROMETHORPHAN HYDROBROMIDE\GUAIFENESIN\PHENYLEPHRINE HYDROCHLORIDE
     Indication: PRODUCT USED FOR UNKNOWN INDICATION
     Route: 065
     Dates: start: 20150109
  2. SPRINGTEK BIRTH CONTROL [Concomitant]
     Indication: PRODUCT USED FOR UNKNOWN INDICATION
     Route: 065
  3. POTASSIUM [Concomitant]
     Active Substance: POTASSIUM
     Indication: PRODUCT USED FOR UNKNOWN INDICATION
     Route: 065
  4. ZOLOFT [Suspect]
     Active Substance: SERTRALINE HYDROCHLORIDE
     Indication: PRODUCT USED FOR UNKNOWN INDICATION
     Route: 065

REACTIONS (4)
  - Tremor [Not Recovered/Not Resolved]
  - Rash macular [Not Recovered/Not Resolved]
  - Contraindicated drug administered [Not Recovered/Not Resolved]
  - Cardiac flutter [Not Recovered/Not Resolved]

NARRATIVE: CASE EVENT DATE: 20150109
